FAERS Safety Report 5779160-6 (Version None)
Quarter: 2008Q2

REPORT INFORMATION
  Report Type: 
  Country: None (occurrence: None)
  Receive Date: 20080616
  Receipt Date: 20070703
  Transmission Date: 20081010
  Serious: Yes (Other)
  Sender: FDA-Public Use
  Company Number: WWISSUE-100

PATIENT
  Sex: Female

DRUGS (1)
  1. PROPOXYPHENE COMPOUND 65 CAP [Suspect]

REACTIONS (1)
  - NAUSEA [None]
